FAERS Safety Report 4465976-5 (Version None)
Quarter: 2004Q4

REPORT INFORMATION
  Report Type: 
  Country: None (occurrence: None)
  Receive Date: 20041005
  Receipt Date: 20040915
  Transmission Date: 20050328
  Serious: Yes (Hospitalization)
  Sender: FDA-Public Use
  Company Number: FR-BRISTOL-MYERS SQUIBB COMPANY-12702528

PATIENT
  Age: 56 Year
  Sex: Female

DRUGS (6)
  1. BUSPAR [Suspect]
     Route: 048
  2. NORSET [Suspect]
  3. MEPRONIZINE [Suspect]
  4. VALIUM [Suspect]
  5. LEXOMIL [Suspect]
     Route: 048
  6. NORDAZ [Suspect]

REACTIONS (16)
  - ALDOLASE INCREASED [None]
  - BLOOD CREATINE PHOSPHOKINASE INCREASED [None]
  - BODY TEMPERATURE INCREASED [None]
  - C-REACTIVE PROTEIN INCREASED [None]
  - CHOLESTASIS [None]
  - CYTOLYTIC HEPATITIS [None]
  - FALL [None]
  - HEADACHE [None]
  - HEART RATE INCREASED [None]
  - HYPOKALAEMIA [None]
  - INTENTIONAL OVERDOSE [None]
  - MALAISE [None]
  - MULTIPLE DRUG OVERDOSE INTENTIONAL [None]
  - OXYGEN SATURATION DECREASED [None]
  - PNEUMONIA ASPIRATION [None]
  - SOMNOLENCE [None]
